FAERS Safety Report 4708617-1 (Version None)
Quarter: 2005Q3

REPORT INFORMATION
  Report Type: 
  Country: None (occurrence: None)
  Receive Date: 20050707
  Receipt Date: 20040818
  Transmission Date: 20060218
  Serious: Yes (Death, Hospitalization, Other)
  Sender: FDA-Public Use
  Company Number: 200416243US

PATIENT
  Sex: Female
  Weight: 35 kg

DRUGS (1)
  1. DOCETAXEL [Suspect]
     Indication: BREAST CANCER METASTATIC
     Dosage: DOSE: 35 MG/M**2 (3 WEEKS ON, 1 WEEK OFF)
     Route: 042
     Dates: start: 20040811, end: 20040811

REACTIONS (20)
  - ACTIVATED PARTIAL THROMBOPLASTIN TIME ABNORMAL [None]
  - BREAST CANCER METASTATIC [None]
  - CARDIO-RESPIRATORY ARREST [None]
  - COMPUTERISED TOMOGRAM ABNORMAL [None]
  - DEHYDRATION [None]
  - DYSPNOEA [None]
  - FALL [None]
  - FATIGUE [None]
  - HYPOCALCAEMIA [None]
  - HYPONATRAEMIA [None]
  - LUNG ABSCESS [None]
  - LUNG CONSOLIDATION [None]
  - LUNG INFECTION PSEUDOMONAL [None]
  - LYMPHOPENIA [None]
  - MASS [None]
  - PLEURAL EFFUSION [None]
  - PNEUMONIA [None]
  - PSEUDOMONAS INFECTION [None]
  - PULMONARY CAVITATION [None]
  - PYREXIA [None]
